FAERS Safety Report 10076178 (Version 3)
Quarter: 2014Q2

REPORT INFORMATION
  Report Type: Spontaneous
  Country: DK (occurrence: DK)
  Receive Date: 20140414
  Receipt Date: 20140512
  Transmission Date: 20141212
  Serious: Yes (Life-Threatening, Hospitalization)
  Sender: FDA-Public Use
  Company Number: DK-EISAI INC-E2007-01624-SPO-DK

PATIENT
  Age: 14 Year
  Sex: Male
  Weight: 50 kg

DRUGS (7)
  1. FYCOMPA (PERAMPANEL) [Suspect]
     Indication: PARTIAL SEIZURES
     Route: 048
     Dates: start: 20131212, end: 20140127
  2. FYCOMPA (PERAMPANEL) [Suspect]
     Route: 048
     Dates: start: 20140128, end: 20140217
  3. FYCOMPA (PERAMPANEL) [Suspect]
     Route: 048
     Dates: start: 20140218, end: 20140331
  4. FYCOMPA (PERAMPANEL) [Suspect]
     Route: 048
     Dates: start: 20140401, end: 20140406
  5. FYCOMPA (PERAMPANEL) [Suspect]
     Route: 048
     Dates: start: 20140407
  6. LEVETIRACETAM [Concomitant]
     Indication: EPILEPSY
     Dates: start: 20100127
  7. ORFIRIL LONG [Concomitant]
     Indication: EPILEPSY
     Dates: start: 2002

REACTIONS (5)
  - Respiratory failure [Recovered/Resolved]
  - Respiratory acidosis [Recovered/Resolved]
  - Respiratory tract infection [Recovered/Resolved]
  - Asthenia [Unknown]
  - Fatigue [Recovered/Resolved]
